FAERS Safety Report 4474477-X (Version None)
Quarter: 2004Q4

REPORT INFORMATION
  Report Type: 
  Country: None (occurrence: None)
  Receive Date: 20041014
  Receipt Date: 20040823
  Transmission Date: 20050328
  Serious: Yes (Hospitalization)
  Sender: FDA-Public Use
  Company Number: FR-GLAXOSMITHKLINE-B0343259A

PATIENT
  Age: 71 Year
  Sex: Male
  Weight: 90 kg

DRUGS (1)
  1. CLAMOXYL [Suspect]
     Indication: SUPERINFECTION LUNG
     Dosage: 3G PER DAY
     Route: 048
     Dates: start: 20040325, end: 20040402

REACTIONS (3)
  - ANTI FACTOR VIII ANTIBODY POSITIVE [None]
  - HAEMATOMA [None]
  - KAOLIN CEPHALIN CLOTTING TIME PROLONGED [None]
